FAERS Safety Report 6346133-4 (Version None)
Quarter: 2009Q3

REPORT INFORMATION
  Report Type: 
  Country: None (occurrence: None)
  Receive Date: 20090909
  Receipt Date: 20090813
  Transmission Date: 20100115
  Serious: Yes (Hospitalization)
  Sender: FDA-Public Use
  Company Number: JP-MERCK-0907USA02460

PATIENT
  Age: 49 Year
  Sex: Male

DRUGS (35)
  1. ISENTRESS [Suspect]
     Indication: HIV INFECTION
     Route: 048
     Dates: start: 20090116, end: 20090426
  2. ZIAGEN [Suspect]
     Indication: HIV INFECTION
     Route: 048
     Dates: start: 20010617, end: 20090427
  3. VIRAMUNE [Suspect]
     Indication: HIV INFECTION
     Route: 048
     Dates: start: 20011030, end: 20090322
  4. VIRAMUNE [Suspect]
     Route: 048
     Dates: start: 20090410, end: 20090501
  5. DIOVAN [Concomitant]
     Indication: HYPERTENSION
     Route: 048
  6. TRANSAMIN [Concomitant]
     Indication: HAEMOPHILIA
     Route: 048
  7. NATRIX [Concomitant]
     Indication: HYPERTENSION
     Route: 048
  8. VIRAMUNE [Concomitant]
     Route: 048
     Dates: start: 20090410, end: 20090501
  9. NORVIR [Suspect]
     Indication: HIV INFECTION
     Route: 048
     Dates: start: 20090512, end: 20090601
  10. TRUVADA [Suspect]
     Indication: HIV INFECTION
     Route: 048
     Dates: start: 20090323, end: 20090409
  11. TRUVADA [Suspect]
     Route: 048
     Dates: start: 20090707
  12. PREZISTA [Suspect]
     Indication: HIV INFECTION
     Route: 048
     Dates: start: 20090512, end: 20090601
  13. PREDNISOLONE [Suspect]
     Indication: PERITONITIS
     Route: 048
     Dates: start: 20090213, end: 20090215
  14. PREDNISOLONE [Suspect]
     Route: 048
     Dates: start: 20090215, end: 20090218
  15. PREDNISOLONE [Suspect]
     Route: 048
     Dates: start: 20090302, end: 20090304
  16. PREDNISOLONE [Suspect]
     Route: 048
     Dates: start: 20090305, end: 20090307
  17. PREDNISOLONE [Suspect]
     Route: 048
     Dates: start: 20090308, end: 20090607
  18. PREDNISOLONE [Suspect]
     Route: 048
     Dates: start: 20090608, end: 20090614
  19. PREDNISOLONE [Suspect]
     Route: 048
     Dates: start: 20090615, end: 20090621
  20. PREDNISOLONE [Suspect]
     Route: 048
     Dates: start: 20090622, end: 20090628
  21. PREDNISOLONE [Suspect]
     Route: 048
     Dates: start: 20090629, end: 20090702
  22. PREDNISOLONE [Suspect]
     Route: 048
     Dates: start: 20090703
  23. KALETRA [Concomitant]
     Indication: HIV INFECTION
     Route: 048
     Dates: start: 20090428, end: 20090501
  24. DIOVAN [Concomitant]
     Route: 048
     Dates: start: 20080317
  25. NATRIX [Concomitant]
     Route: 048
     Dates: start: 20080506
  26. TRANSAMIN [Concomitant]
     Route: 048
     Dates: start: 20070403
  27. FACTOR VIII [Concomitant]
     Indication: HAEMOPHILIA
     Route: 041
     Dates: start: 20090119, end: 20090501
  28. FACTOR VIII [Concomitant]
     Route: 041
     Dates: start: 20090507, end: 20090723
  29. FACTOR VIII [Concomitant]
     Indication: HAEMORRHAGE PROPHYLAXIS
     Route: 041
     Dates: start: 20090119, end: 20090501
  30. FACTOR VIII [Concomitant]
     Route: 041
     Dates: start: 20090507, end: 20090723
  31. PEPCID [Concomitant]
     Indication: ABDOMINAL PAIN
     Route: 065
     Dates: start: 20010403
  32. DEPAS [Concomitant]
     Indication: INSOMNIA
     Route: 048
     Dates: start: 20090407
  33. DEPAS [Concomitant]
     Route: 065
  34. LOPEMIN [Concomitant]
     Indication: DIARRHOEA
     Route: 048
     Dates: start: 20080310, end: 20090506
  35. BIOFERMIN [Concomitant]
     Indication: CONSTIPATION
     Route: 048
     Dates: start: 20081010

REACTIONS (15)
  - ABDOMINAL DISTENSION [None]
  - ABDOMINAL PAIN UPPER [None]
  - BACK PAIN [None]
  - CHEST PAIN [None]
  - DIABETES MELLITUS [None]
  - EPISTAXIS [None]
  - FEELING ABNORMAL [None]
  - FLANK PAIN [None]
  - GLYCOSYLATED HAEMOGLOBIN INCREASED [None]
  - HAEMORRHAGIC DIATHESIS [None]
  - HEADACHE [None]
  - LIVER DISORDER [None]
  - MYALGIA [None]
  - PERITONITIS [None]
  - PETECHIAE [None]
